FAERS Safety Report 13997682 (Version 2)
Quarter: 2017Q4

REPORT INFORMATION
  Report Type: Spontaneous
  Country: BE (occurrence: BE)
  Receive Date: 20170921
  Receipt Date: 20171003
  Transmission Date: 20180321
  Serious: Yes (Hospitalization)
  Sender: FDA-Public Use
  Company Number: BE-SA-2017SA169893

PATIENT
  Age: 68 Year
  Sex: Male

DRUGS (2)
  1. AUBAGIO [Suspect]
     Active Substance: TERIFLUNOMIDE
     Route: 048
     Dates: start: 20170713
  2. REBIF [Concomitant]
     Active Substance: INTERFERON BETA-1A

REACTIONS (8)
  - Bacteraemia [Unknown]
  - Thrombocytopenia [Unknown]
  - Urinary bladder haemorrhage [Unknown]
  - Haematuria [Unknown]
  - Hypokalaemia [Unknown]
  - Enterococcal infection [Unknown]
  - Hypovolaemic shock [Unknown]
  - Klebsiella infection [Unknown]
